FAERS Safety Report 7816368-X (Version None)
Quarter: 2011Q4

REPORT INFORMATION
  Report Type: 
  Country: None (occurrence: None)
  Receive Date: 20111017
  Receipt Date: 20111010
  Transmission Date: 20120403
  Serious: Yes (Other)
  Sender: FDA-Public Use
  Company Number: US-BIOGENIDEC-2011BI036520

PATIENT
  Age: 57 Year
  Sex: Female

DRUGS (7)
  1. LISINOPRIL [Concomitant]
     Indication: HYPERTENSION
  2. FENTANYL [Concomitant]
     Indication: PAIN
     Dates: end: 20110601
  3. PREMARIN [Concomitant]
     Indication: HORMONE REPLACEMENT THERAPY
     Dates: start: 19810101, end: 20110801
  4. AVONEX [Suspect]
     Route: 030
     Dates: start: 20030601, end: 20030101
  5. SYNTHROID [Concomitant]
     Indication: HYPOTHYROIDISM
  6. AVONEX [Suspect]
     Indication: MULTIPLE SCLEROSIS
     Route: 030
     Dates: start: 20110501
  7. LYRICA [Concomitant]
     Indication: PAIN
     Dates: start: 20100101

REACTIONS (14)
  - LACERATION [None]
  - EXCORIATION [None]
  - HEADACHE [None]
  - PULMONARY EMBOLISM [None]
  - CONTUSION [None]
  - DIZZINESS [None]
  - ASTHENIA [None]
  - URINARY INCONTINENCE [None]
  - SOMNOLENCE [None]
  - FALL [None]
  - INTERNATIONAL NORMALISED RATIO INCREASED [None]
  - INFLUENZA LIKE ILLNESS [None]
  - PAIN IN EXTREMITY [None]
  - DEEP VEIN THROMBOSIS [None]
